FAERS Safety Report 9461099 (Version 1)
Quarter: 2013Q3

REPORT INFORMATION
  Report Type: Spontaneous
  Country: FR (occurrence: FR)
  Receive Date: 20130816
  Receipt Date: 20130816
  Transmission Date: 20140515
  Serious: Yes (Hospitalization)
  Sender: FDA-Public Use
  Company Number: FR-009507513-1308FRA002415

PATIENT
  Age: 80 Year
  Sex: Male

DRUGS (9)
  1. SINEMET 100 MG / 10 MG COMPRIME SECABLE [Suspect]
     Indication: DEMENTIA WITH LEWY BODIES
     Dosage: 0.5 DF, TID
     Route: 048
     Dates: start: 201207, end: 20120809
  2. RENITEC [Concomitant]
  3. LASILIX [Concomitant]
  4. PREVISCAN [Concomitant]
  5. ADANCOR [Concomitant]
  6. INEXIUM [Concomitant]
  7. CRESTOR [Concomitant]
  8. CARDENSIEL [Concomitant]
  9. SEROPLEX [Concomitant]

REACTIONS (1)
  - Confusional state [Recovered/Resolved]
